FAERS Safety Report 5624982-5 (Version None)
Quarter: 2008Q1

REPORT INFORMATION
  Report Type: 
  Country: None (occurrence: None)
  Receive Date: 20080213
  Receipt Date: 20080201
  Transmission Date: 20080703
  Serious: Yes (Hospitalization)
  Sender: FDA-Public Use
  Company Number: DK-GENENTECH-255739

PATIENT
  Sex: Female

DRUGS (1)
  1. MABTHERA [Suspect]
     Indication: THROMBOCYTOPENIC PURPURA
     Route: 042
     Dates: start: 20071228, end: 20080108

REACTIONS (8)
  - ARTHRALGIA [None]
  - C-REACTIVE PROTEIN INCREASED [None]
  - HEADACHE [None]
  - IDIOPATHIC THROMBOCYTOPENIC PURPURA [None]
  - LYMPHADENOPATHY [None]
  - PROTEINURIA [None]
  - RASH [None]
  - SERUM SICKNESS [None]
